FAERS Safety Report 4619962-2 (Version None)
Quarter: 2005Q1

REPORT INFORMATION
  Report Type: 
  Country: None (occurrence: None)
  Receive Date: 20050328
  Receipt Date: 20050317
  Transmission Date: 20050727
  Serious: Yes (Other)
  Sender: FDA-Public Use
  Company Number: AU-ABBOTT-05P-008-0294552-00

PATIENT
  Age: 51 Year
  Sex: Male

DRUGS (7)
  1. EPILIM [Interacting]
     Indication: AGGRESSION
     Route: 048
     Dates: start: 20040901, end: 20050214
  2. EPILIM [Interacting]
     Route: 048
     Dates: start: 20050214, end: 20050220
  3. MEMANTINE HYDROCHLORIDE [Interacting]
     Indication: DEMENTIA
     Dates: start: 20050214
  4. VENLAFAXINE HCL [Suspect]
     Indication: DRUG USE FOR UNKNOWN INDICATION
  5. LEVOTHYROXINE SODIUM [Concomitant]
     Indication: DRUG USE FOR UNKNOWN INDICATION
  6. OMEPRAZOLE [Concomitant]
     Indication: DRUG USE FOR UNKNOWN INDICATION
  7. TEMAZEPAM [Concomitant]
     Indication: DRUG USE FOR UNKNOWN INDICATION

REACTIONS (3)
  - DRUG INTERACTION [None]
  - DRUG WITHDRAWAL CONVULSIONS [None]
  - SEDATION [None]
